FAERS Safety Report 7761301-2 (Version None)
Quarter: 2011Q3

REPORT INFORMATION
  Report Type: 
  Country: None (occurrence: None)
  Receive Date: 20110920
  Receipt Date: 20110907
  Transmission Date: 20111222
  Serious: Yes (Hospitalization)
  Sender: FDA-Public Use
  Company Number: TW-CELGENEUS-153-21880-11090329

PATIENT
  Sex: Male
  Weight: 48 kg

DRUGS (5)
  1. TOLTERODINE TARTRATE [Concomitant]
     Indication: DYSURIA
     Dosage: 4 MILLIGRAM
     Route: 048
     Dates: start: 20110718, end: 20110807
  2. DONISON [Concomitant]
     Indication: MULTIPLE MYELOMA
     Dosage: 20 MILLIGRAM
     Route: 048
     Dates: start: 20110509
  3. NINCORT [Concomitant]
     Dosage: 7 GRAM
     Route: 048
     Dates: start: 20110509, end: 20110724
  4. ASPIRIN [Concomitant]
     Indication: PROPHYLAXIS
     Dosage: 100 MILLIGRAM
     Route: 048
     Dates: start: 20110620
  5. REVLIMID [Suspect]
     Indication: MULTIPLE MYELOMA
     Dosage: 15 MILLIGRAM
     Route: 048
     Dates: start: 20110509, end: 20110822

REACTIONS (1)
  - PSORIASIS [None]
